FAERS Safety Report 4963103-9 (Version None)
Quarter: 2006Q2

REPORT INFORMATION
  Report Type: 
  Country: None (occurrence: None)
  Receive Date: 20060405
  Receipt Date: 20060330
  Transmission Date: 20061013
  Serious: Yes (Hospitalization)
  Sender: FDA-Public Use
  Company Number: FR-GLAXOSMITHKLINE-B0418446A

PATIENT
  Age: 73 Year
  Sex: Male

DRUGS (4)
  1. PAROXETINE HYDROCHLORIDE [Suspect]
     Route: 048
  2. TOPALGIC (FRANCE) [Suspect]
     Indication: CAUDA EQUINA SYNDROME
     Route: 048
  3. DI ANTALVIC [Suspect]
     Indication: CAUDA EQUINA SYNDROME
     Route: 048
  4. NEURONTIN [Concomitant]
     Indication: CAUDA EQUINA SYNDROME
     Route: 048

REACTIONS (10)
  - AMNESIA [None]
  - APHASIA [None]
  - CONFUSIONAL STATE [None]
  - DELIRIUM [None]
  - DIFFICULTY IN WALKING [None]
  - HALLUCINATION [None]
  - MEDICATION ERROR [None]
  - MEMORY IMPAIRMENT [None]
  - PYREXIA [None]
  - URINARY INCONTINENCE [None]
